FAERS Safety Report 17345203 (Version 1)
Quarter: 2020Q1

REPORT INFORMATION
  Report Type: Spontaneous
  Country: US (occurrence: US)
  Receive Date: 20200129
  Receipt Date: 20200129
  Transmission Date: 20200409
  Serious: No
  Sender: FDA-Public Use
  Company Number: US-ALLERGAN-1946563US

PATIENT

DRUGS (1)
  1. BOTOX [Suspect]
     Active Substance: ONABOTULINUMTOXINA
     Indication: TEMPOROMANDIBULAR JOINT SYNDROME
     Dosage: UNK, SINGLE

REACTIONS (6)
  - Swelling [Unknown]
  - Off label use [Unknown]
  - Pain [Unknown]
  - Lacrimation increased [Unknown]
  - Hypersensitivity [Unknown]
  - Erythema [Unknown]
